FAERS Safety Report 9055889 (Version 1)
Quarter: 2013Q1

REPORT INFORMATION
  Report Type: Spontaneous
  Country: US (occurrence: US)
  Receive Date: 20130206
  Receipt Date: 20130206
  Transmission Date: 20140127
  Serious: No
  Sender: FDA-Public Use
  Company Number: US-ALLERGAN-1201577US

PATIENT
  Age: 60 Year
  Sex: Male

DRUGS (4)
  1. RESTASIS [Suspect]
     Indication: DRY EYE
     Dosage: 2 GTT, BID
     Route: 047
     Dates: start: 201112, end: 201203
  2. RESTASIS [Suspect]
     Dosage: UNK
     Route: 047
     Dates: start: 201203
  3. REFRESH PLUS [Concomitant]
     Indication: DRY EYE
     Dosage: 2 GTT, PRN
     Route: 047
  4. REFRESH OPTIVE [Concomitant]
     Indication: DRY EYE
     Dosage: 2 GTT, PRN
     Route: 047

REACTIONS (3)
  - Eyelids pruritus [Unknown]
  - Eyelid irritation [Recovering/Resolving]
  - Wrong technique in drug usage process [Unknown]
